FAERS Safety Report 23375552 (Version 1)
Quarter: 2024Q1

REPORT INFORMATION
  Report Type: Spontaneous
  Country: US (occurrence: US)
  Receive Date: 20240107
  Receipt Date: 20240107
  Transmission Date: 20240410
  Serious: No
  Sender: FDA-Public Use
  Company Number: US-JNJFOC-20231237581

PATIENT
  Age: 17 Year

DRUGS (1)
  1. WOMENS ROGAINE UNSCENTED [Suspect]
     Active Substance: MINOXIDIL
     Indication: Alopecia
     Dosage: A SMALL HANDFUL EVERY DAY AND THEN WHEN ITCHING STARTED EVERY OTHER DAY
     Route: 061
     Dates: start: 20230601

REACTIONS (3)
  - Application site pruritus [Not Recovered/Not Resolved]
  - Product administered to patient of inappropriate age [Unknown]
  - Product use in unapproved indication [Unknown]

NARRATIVE: CASE EVENT DATE: 20230601
